FAERS Safety Report 4533645-9 (Version None)
Quarter: 2004Q4

REPORT INFORMATION
  Report Type: 
  Country: None (occurrence: None)
  Receive Date: 20041221
  Receipt Date: 20041216
  Transmission Date: 20050328
  Serious: Yes (Hospitalization, Other)
  Sender: FDA-Public Use
  Company Number: US-GLAXOSMITHKLINE-A0537547A

PATIENT
  Age: 32 Year
  Sex: Female

DRUGS (2)
  1. MASSENGILL [Suspect]
     Indication: IMPAIRED SELF-CARE
     Route: 067
  2. MASSENGILL TOWELETTE, UNSCENTED [Suspect]
     Indication: IMPAIRED SELF-CARE
     Route: 067

REACTIONS (4)
  - ENDOMETRIOSIS [None]
  - FUNGAL INFECTION [None]
  - HYPERTENSION [None]
  - VULVOVAGINAL DRYNESS [None]
